FAERS Safety Report 17304950 (Version 6)
Quarter: 2020Q3

REPORT INFORMATION
  Report Type: Spontaneous
  Country: US (occurrence: US)
  Receive Date: 20200123
  Receipt Date: 20200915
  Transmission Date: 20201102
  Serious: No
  Sender: FDA-Public Use
  Company Number: US-PFIZER INC-2020030154

PATIENT
  Age: 62 Year
  Sex: Female

DRUGS (1)
  1. FLECTOR [Suspect]
     Active Substance: DICLOFENAC EPOLAMINE
     Dosage: UNK

REACTIONS (6)
  - Arthritis [Unknown]
  - Illness [Unknown]
  - Fatigue [Unknown]
  - Cardiac murmur [Unknown]
  - Pain [Not Recovered/Not Resolved]
  - Intervertebral disc protrusion [Unknown]
